FAERS Safety Report 9886340 (Version 1)
Quarter: 2014Q1

REPORT INFORMATION
  Report Type: Spontaneous
  Country: VE (occurrence: VE)
  Receive Date: 20140210
  Receipt Date: 20140210
  Transmission Date: 20141002
  Serious: No
  Sender: FDA-Public Use
  Company Number: PHHY2014VE016213

PATIENT
  Age: 21 Year
  Sex: Male

DRUGS (1)
  1. LAMISIL [Suspect]
     Indication: SKIN INFECTION
     Dosage: UNK UKN, QD (ONCE DAILY)
     Route: 061
     Dates: start: 20140130, end: 20140203

REACTIONS (4)
  - Swelling [Not Recovered/Not Resolved]
  - Pain [Not Recovered/Not Resolved]
  - Erythema [Not Recovered/Not Resolved]
  - Expired drug administered [Unknown]
